FAERS Safety Report 23204749 (Version 1)
Quarter: 2023Q4

REPORT INFORMATION
  Report Type: Spontaneous
  Country: US (occurrence: None)
  Receive Date: 20231120
  Receipt Date: 20231120
  Transmission Date: 20240109
  Serious: Yes (Hospitalization)
  Sender: FDA-Public Use
  Company Number: None

PATIENT
  Age: 74 Year
  Sex: Male

DRUGS (1)
  1. VOSEVI [Suspect]
     Active Substance: SOFOSBUVIR\VELPATASVIR\VOXILAPREVIR
     Dosage: OTHER QUANTITY : 400MG/100ML;?FREQUENCY : DAILY;?

REACTIONS (3)
  - Dyspnoea [None]
  - Oedema [None]
  - Renal disorder [None]

NARRATIVE: CASE EVENT DATE: 20231116
